FAERS Safety Report 23858948 (Version 1)
Quarter: 2024Q2

REPORT INFORMATION
  Report Type: Spontaneous
  Country: US (occurrence: US)
  Receive Date: 20240515
  Receipt Date: 20240515
  Transmission Date: 20240716
  Serious: Yes (Other)
  Sender: FDA-Public Use
  Company Number: US-JNJFOC-20240534717

PATIENT
  Age: 22 Year
  Sex: Male

DRUGS (8)
  1. INVEGA [Suspect]
     Active Substance: PALIPERIDONE
     Indication: Schizophrenia
     Dosage: 9 MG AT BEDTIME FOR 7 DAYS
     Route: 048
     Dates: start: 20180215, end: 201802
  2. INVEGA SUSTENNA [Suspect]
     Active Substance: PALIPERIDONE PALMITATE
     Indication: Schizophrenia
     Dosage: 234 MG ONCE AND THEN IN 2 WEEKS 234 MG EVERY 4 WEEKS
     Route: 030
     Dates: start: 20180226, end: 20180502
  3. INVEGA SUSTENNA [Suspect]
     Active Substance: PALIPERIDONE PALMITATE
  4. INVEGA SUSTENNA [Suspect]
     Active Substance: PALIPERIDONE PALMITATE
  5. INVEGA TRINZA [Suspect]
     Active Substance: PALIPERIDONE PALMITATE
     Indication: Schizophrenia
     Route: 030
     Dates: start: 20180510, end: 20180822
  6. INVEGA TRINZA [Suspect]
     Active Substance: PALIPERIDONE PALMITATE
  7. INVEGA TRINZA [Suspect]
     Active Substance: PALIPERIDONE PALMITATE
  8. ZOLOFT [Suspect]
     Active Substance: SERTRALINE HYDROCHLORIDE
     Indication: Schizophrenia
     Route: 048
     Dates: end: 20180823

REACTIONS (4)
  - Weight increased [Recovering/Resolving]
  - Ejaculation failure [Recovering/Resolving]
  - Hypersomnia [Unknown]
  - Treatment noncompliance [Unknown]

NARRATIVE: CASE EVENT DATE: 20180101
